FAERS Safety Report 17006085 (Version 1)
Quarter: 2019Q4

REPORT INFORMATION
  Report Type: Spontaneous
  Country: US (occurrence: US)
  Receive Date: 20191106
  Receipt Date: 20191106
  Transmission Date: 20200122
  Serious: No
  Sender: FDA-Public Use
  Company Number: None

PATIENT

DRUGS (2)
  1. HEPARIN SODIUM AND DEXTROSE- HEPARIN SODIUM INJECTION, SOLUTION [Suspect]
     Active Substance: DEXTROSE\HEPARIN SODIUM
     Indication: PULMONARY EMBOLISM
     Dates: start: 20191101, end: 20191105
  2. HEPARIN SODIUM AND DEXTROSE- HEPARIN SODIUM INJECTION, SOLUTION [Suspect]
     Active Substance: DEXTROSE\HEPARIN SODIUM
     Indication: DEEP VEIN THROMBOSIS
     Dates: start: 20191101, end: 20191105

REACTIONS (2)
  - Activated partial thromboplastin time prolonged [None]
  - Product quality issue [None]

NARRATIVE: CASE EVENT DATE: 20191102
